FAERS Safety Report 11376279 (Version 1)
Quarter: 2015Q3

REPORT INFORMATION
  Report Type: Spontaneous
  Country: JP (occurrence: JP)
  Receive Date: 20150813
  Receipt Date: 20150813
  Transmission Date: 20151125
  Serious: Yes (Other)
  Sender: FDA-Public Use
  Company Number: JP-MALLINCKRODT-T201503363

PATIENT
  Age: 35 Year
  Sex: Male
  Weight: 60 kg

DRUGS (25)
  1. TRANSAMIN [Concomitant]
     Active Substance: TRANEXAMIC ACID
     Dosage: 1000 MG
     Route: 051
     Dates: start: 20150620
  2. HIRNAMIN [Concomitant]
     Active Substance: PHENOTHIAZINE
     Dosage: 75 MG
     Route: 048
     Dates: end: 20150620
  3. FULCALIQ [Concomitant]
     Active Substance: AMINO ACIDS\CARBOHYDRATES\ELECTROLYTES NOS\VITAMINS
     Dosage: 903 ML
     Route: 051
     Dates: start: 20150616
  4. CONTOMIN [Concomitant]
     Active Substance: CHLORPROMAZINE
     Dosage: 100 MG, 50 MG
     Dates: start: 20150620
  5. MYSLEE [Concomitant]
     Active Substance: ZOLPIDEM TARTRATE
     Dosage: 10 MG
     Route: 048
     Dates: end: 20150619
  6. FAMOTIDINE. [Concomitant]
     Active Substance: FAMOTIDINE
     Dosage: 20 MG
     Route: 051
     Dates: start: 20150616
  7. FENTOS [Concomitant]
     Active Substance: FENTANYL
     Dosage: 8 MG
     Route: 062
  8. ROZEREM [Concomitant]
     Active Substance: RAMELTEON
     Dosage: 8 MG
     Dates: end: 20150619
  9. MAGMITT [Concomitant]
     Active Substance: MAGNESIUM OXIDE
     Dosage: 1980 MG
     Route: 048
     Dates: end: 20150620
  10. PANTHENYL [Concomitant]
     Dosage: 1500 MG
     Route: 051
     Dates: start: 20150617
  11. FLUNITRAZEPAM [Concomitant]
     Active Substance: FLUNITRAZEPAM
     Dosage: 2 MG
     Route: 048
     Dates: end: 20150620
  12. SOLDEM [Concomitant]
     Active Substance: DEXTROSE\POTASSIUM CHLORIDE\SODIUM CHLORIDE\SODIUM LACTATE
     Dosage: 500 ML
     Route: 051
     Dates: start: 20150616
  13. ELEJECT [Concomitant]
     Dosage: 1 DF
     Route: 051
     Dates: start: 20150616
  14. METHADONE [Suspect]
     Active Substance: METHADONE HYDROCHLORIDE
     Indication: CANCER PAIN
     Dosage: 5 MG (15 MG DAILY DOSE)
     Route: 048
     Dates: start: 20150616, end: 20150620
  15. GASMOTIN [Concomitant]
     Active Substance: MOSAPRIDE CITRATE
     Dosage: 15 MG
     Route: 048
     Dates: end: 20150620
  16. MORPHINE HCL [Concomitant]
     Active Substance: MORPHINE HYDROCHLORIDE
     Dosage: 10-14 MG PRN
     Route: 051
     Dates: start: 20150619
  17. HALOPERIDOL. [Concomitant]
     Active Substance: HALOPERIDOL
     Dosage: 27 MG
     Route: 048
     Dates: end: 20150620
  18. ROHYPNOL [Concomitant]
     Active Substance: FLUNITRAZEPAM
     Dosage: 8 MG
     Route: 051
     Dates: start: 20150620
  19. MORPHINE HCL [Concomitant]
     Active Substance: MORPHINE HYDROCHLORIDE
     Dosage: 144 MG
     Route: 051
     Dates: start: 20150615
  20. ZYPREXA [Concomitant]
     Active Substance: OLANZAPINE
     Dosage: 20 MG
     Route: 048
     Dates: end: 20150619
  21. GASCON [Concomitant]
     Active Substance: DIMETHICONE
     Dosage: 120 MG
     Route: 048
     Dates: end: 20150620
  22. ADONA [Concomitant]
     Active Substance: CARBAZOCHROME SODIUM SULFONATE
     Dosage: 100 MG
     Route: 051
     Dates: start: 20150620
  23. FENTOS [Concomitant]
     Active Substance: FENTANYL
     Dosage: 4 MG
     Route: 062
     Dates: start: 20150623
  24. LORAZEPAM. [Concomitant]
     Active Substance: LORAZEPAM
     Dosage: 1 MG
     Route: 048
     Dates: end: 20150620
  25. HIBERNA [Concomitant]
     Active Substance: PROMETHAZINE HYDROCHLORIDE
     Dosage: 100 MG, 50 MG
     Dates: start: 20150620

REACTIONS (1)
  - Haematemesis [Not Recovered/Not Resolved]

NARRATIVE: CASE EVENT DATE: 20150620
